FAERS Safety Report 25613122 (Version 1)
Quarter: 2025Q3

REPORT INFORMATION
  Report Type: Spontaneous
  Country: US (occurrence: None)
  Receive Date: 20250726
  Receipt Date: 20250726
  Transmission Date: 20251020
  Serious: Yes (Other)
  Sender: FDA-CTU
  Company Number: None

PATIENT
  Age: 33 Year
  Sex: Female
  Weight: 58.5 kg

DRUGS (1)
  1. LEXAPRO [Suspect]
     Active Substance: ESCITALOPRAM OXALATE

REACTIONS (11)
  - Sexual dysfunction [None]
  - Withdrawal syndrome [None]
  - Electric shock sensation [None]
  - Dizziness [None]
  - Insomnia [None]
  - Panic disorder [None]
  - Anger [None]
  - Intracranial pressure increased [None]
  - Nausea [None]
  - Muscle tightness [None]
  - Chills [None]

NARRATIVE: CASE EVENT DATE: 20201130
